FAERS Safety Report 4574847-5 (Version None)
Quarter: 2005Q1

REPORT INFORMATION
  Report Type: 
  Country: None (occurrence: None)
  Receive Date: 20050208
  Receipt Date: 20040716
  Transmission Date: 20050727
  Serious: No
  Sender: FDA-Public Use
  Company Number: US-GLAXOSMITHKLINE-A0518643A

PATIENT
  Age: 20 Year
  Sex: Female

DRUGS (2)
  1. PAXIL CR [Suspect]
     Dosage: 12.5MG PER DAY
     Route: 048
     Dates: start: 20040604, end: 20040611
  2. NO CONCURRENT MEDICATION [Concomitant]

REACTIONS (8)
  - DIZZINESS [None]
  - DRY MOUTH [None]
  - DYSPNOEA [None]
  - HAEMATOCHEZIA [None]
  - HEADACHE [None]
  - MUSCULAR WEAKNESS [None]
  - THROAT TIGHTNESS [None]
  - YAWNING [None]
